FAERS Safety Report 5750692-X (Version None)
Quarter: 2008Q2

REPORT INFORMATION
  Report Type: 
  Country: None (occurrence: None)
  Receive Date: 20080528
  Receipt Date: 20080519
  Transmission Date: 20081010
  Serious: Yes (Other)
  Sender: FDA-Public Use
  Company Number: FI-JNJFOC-20080405660

PATIENT
  Age: 4 Decade
  Sex: Female

DRUGS (6)
  1. RISPERDAL CONSTA [Suspect]
     Indication: PSYCHOTIC DISORDER DUE TO A GENERAL MEDICAL CONDITION
     Dosage: 2-3 TIMES
     Route: 030
  2. RISPERDAL [Suspect]
     Route: 048
  3. RISPERDAL [Suspect]
     Route: 048
  4. RISPERDAL [Suspect]
     Indication: PSYCHOTIC DISORDER DUE TO A GENERAL MEDICAL CONDITION
     Route: 048
  5. AKINETON [Suspect]
     Indication: EXTRAPYRAMIDAL DISORDER
  6. DEPRAKINE [Concomitant]
     Indication: EPILEPSY

REACTIONS (2)
  - EPILEPSY [None]
  - EXTRAPYRAMIDAL DISORDER [None]
